FAERS Safety Report 9579874 (Version 1)
Quarter: 2013Q4

REPORT INFORMATION
  Report Type: Spontaneous
  Country: US (occurrence: US)
  Receive Date: 20131002
  Receipt Date: 20131002
  Transmission Date: 20140711
  Serious: Yes (Other)
  Sender: FDA-Public Use
  Company Number: US-009507513-1309USA014683

PATIENT
  Sex: Female
  Weight: 54.42 kg

DRUGS (2)
  1. IMPLANON [Suspect]
     Indication: CONTRACEPTION
     Dosage: 3 YEAR
     Route: 059
     Dates: start: 20100927
  2. EPITOL [Concomitant]

REACTIONS (9)
  - Loss of consciousness [Unknown]
  - Sensory loss [Unknown]
  - Dyspnoea [Unknown]
  - Suicidal ideation [Unknown]
  - Syncope [Unknown]
  - Headache [Unknown]
  - Dizziness [Unknown]
  - Alopecia [Unknown]
  - Depression [Unknown]
